FAERS Safety Report 12203026 (Version 2)
Quarter: 2016Q1

REPORT INFORMATION
  Report Type: Report from Study
  Country: IN (occurrence: IN)
  Receive Date: 20160323
  Receipt Date: 20160331
  Transmission Date: 20160526
  Serious: Yes (Death, Other)
  Sender: FDA-Public Use
  Company Number: IN-BRISTOL-MYERS SQUIBB COMPANY-BMS-2016-020942

PATIENT
  Age: 30 Year
  Sex: Male

DRUGS (1)
  1. ENTECAVIR. [Suspect]
     Active Substance: ENTECAVIR
     Indication: HEPATITIS B
     Dosage: 0.5 MG, QD
     Route: 048
     Dates: start: 20140805, end: 20160109

REACTIONS (3)
  - Myocardial infarction [Fatal]
  - Cardiac disorder [Unknown]
  - Hepatitis B [Unknown]

NARRATIVE: CASE EVENT DATE: 20160110
